FAERS Safety Report 19407909 (Version 1)
Quarter: 2021Q2

REPORT INFORMATION
  Report Type: Spontaneous
  Country: DE (occurrence: DE)
  Receive Date: 20210611
  Receipt Date: 20210611
  Transmission Date: 20210717
  Serious: Yes (Death, Hospitalization)
  Sender: FDA-Public Use
  Company Number: DE-MYLANLABS-2021M1034025

PATIENT
  Age: 59 Year
  Sex: Female

DRUGS (16)
  1. PREDNISOLONE. [Suspect]
     Active Substance: PREDNISOLONE
     Indication: IMMUNOSUPPRESSANT DRUG THERAPY
     Dosage: 500 MILLIGRAM, QD ON DAY 41
     Route: 042
  2. PREDNISOLONE. [Suspect]
     Active Substance: PREDNISOLONE
     Dosage: 500 MILLIGRAM, BID FROM DAY 42?46
     Route: 042
  3. PREDNISOLONE. [Suspect]
     Active Substance: PREDNISOLONE
     Dosage: 20 MILLIGRAM, QD FROM DAY 47?48
     Route: 042
  4. PREDNISOLONE. [Suspect]
     Active Substance: PREDNISOLONE
     Dosage: 100 MILLIGRAM, QD ON DAY 85
     Route: 042
  5. POLATUZUMAB VEDOTIN. [Suspect]
     Active Substance: POLATUZUMAB VEDOTIN
     Indication: FOLLICULAR LYMPHOMA
     Dosage: 1.8 MILLIGRAM/KILOGRAM D1 OF CYCLE 1?6
     Route: 065
  6. PREDNISOLONE. [Suspect]
     Active Substance: PREDNISOLONE
     Dosage: 500 MILLIGRAM, QD ON DAY 85
     Route: 042
  7. TACROLIMUS. [Suspect]
     Active Substance: TACROLIMUS
     Dosage: 1 MILLIGRAM, BID TAPERED DOWN ON DAY 61
     Route: 048
  8. ATEZOLIZUMAB. [Suspect]
     Active Substance: ATEZOLIZUMAB
     Indication: FOLLICULAR LYMPHOMA
     Dosage: 1200 MILLIGRAM D1 OF C2?6
     Route: 065
  9. PREDNISOLONE. [Suspect]
     Active Substance: PREDNISOLONE
     Dosage: TAPERED DOWN FROM 500MG TO 80MG ON DAY 51 TO 58 AND THEN TAPERED DOWN TO 60MG ON DAY 76
     Route: 042
  10. TOCILIZUMAB. [Suspect]
     Active Substance: TOCILIZUMAB
     Indication: IMMUNOSUPPRESSANT DRUG THERAPY
     Dosage: 3000 MILLIGRAM ON DAY 44 AND DAY 85
     Route: 042
  11. OBINUTUZUMAB. [Suspect]
     Active Substance: OBINUTUZUMAB
     Indication: FOLLICULAR LYMPHOMA
     Dosage: 1000 MILLIGRAM D1, D8, D15 OF C1; D1 OF C2?6
     Route: 065
  12. PREDNISOLONE. [Suspect]
     Active Substance: PREDNISOLONE
     Dosage: TAPERED DOWN FROM 500MG TO 200MG/DAY IN DAYS 90?90
     Route: 042
  13. BENDAMUSTINE HYDROCHLORIDE. [Suspect]
     Active Substance: BENDAMUSTINE HYDROCHLORIDE
     Indication: FOLLICULAR LYMPHOMA
     Dosage: UNK
     Route: 065
  14. BUDESONIDE. [Suspect]
     Active Substance: BUDESONIDE
     Indication: IMMUNOSUPPRESSANT DRUG THERAPY
     Dosage: 1 MILLILITER, QD 250 MG/ML
  15. PREDNISOLONE. [Suspect]
     Active Substance: PREDNISOLONE
     Dosage: 500 MILLIGRAM, QD ON DAY 50
     Route: 042
  16. TACROLIMUS. [Suspect]
     Active Substance: TACROLIMUS
     Indication: IMMUNOSUPPRESSANT DRUG THERAPY
     Dosage: 2 MILLIGRAM, BID ON DAY 56
     Route: 048

REACTIONS (6)
  - Bronchopulmonary aspergillosis [Fatal]
  - Stomatitis [Recovering/Resolving]
  - Conjunctivitis [Recovering/Resolving]
  - Cytomegalovirus infection [Unknown]
  - Pneumonitis [Not Recovered/Not Resolved]
  - Erythema [Recovering/Resolving]
